FAERS Safety Report 7532057-3 (Version None)
Quarter: 2011Q2

REPORT INFORMATION
  Report Type: 
  Country: None (occurrence: None)
  Receive Date: 20110608
  Receipt Date: 20110531
  Transmission Date: 20111010
  Serious: Yes (Hospitalization)
  Sender: FDA-Public Use
  Company Number: US-BAXTER-2011BH016538

PATIENT
  Age: 45 Year
  Sex: Male
  Weight: 98 kg

DRUGS (15)
  1. PEGFILGRASTIM [Concomitant]
     Indication: NEUTROPENIA
     Route: 065
     Dates: start: 20110408, end: 20110408
  2. CYCLOPHOSPHAMIDE [Suspect]
     Route: 042
     Dates: start: 20101117, end: 20101119
  3. RITUXIMAB [Suspect]
     Indication: CHRONIC LYMPHOCYTIC LEUKAEMIA
     Route: 042
     Dates: start: 20101215
  4. ACETAMINOPHEN [Concomitant]
     Indication: PREMEDICATION
     Route: 065
     Dates: start: 20110405, end: 20110405
  5. LORAZEPAM [Concomitant]
     Indication: ANXIETY
     Route: 065
     Dates: start: 20110308
  6. FLUDARABINE PHOSPHATE [Suspect]
     Route: 042
     Dates: start: 20101117, end: 20101119
  7. ONDANSETRON [Concomitant]
     Indication: PREMEDICATION
     Route: 065
     Dates: start: 20110405, end: 20110407
  8. CYCLOPHOSPHAMIDE [Suspect]
     Indication: CHRONIC LYMPHOCYTIC LEUKAEMIA
     Route: 042
     Dates: start: 20110111
  9. ABT-263 [Suspect]
     Route: 048
     Dates: start: 20101118, end: 20101120
  10. FLUDARABINE PHOSPHATE [Suspect]
     Indication: CHRONIC LYMPHOCYTIC LEUKAEMIA
     Route: 042
     Dates: start: 20101215
  11. RITUXIMAB [Suspect]
     Route: 042
     Dates: start: 20101115, end: 20101116
  12. DIPHENHYDRAMINE HYDROCHLORIDE [Concomitant]
     Indication: PREMEDICATION
     Route: 065
     Dates: start: 20110405, end: 20110405
  13. RANITIDINE [Concomitant]
     Indication: PREMEDICATION
     Route: 065
     Dates: start: 20110405, end: 20110405
  14. DEXAMETHASONE PHOSPHATE [Concomitant]
     Indication: PREMEDICATION
     Route: 065
     Dates: start: 20110405, end: 20110405
  15. ABT-263 [Suspect]
     Indication: CHRONIC LYMPHOCYTIC LEUKAEMIA
     Route: 048
     Dates: start: 20101214

REACTIONS (1)
  - PNEUMONIA [None]
